FAERS Safety Report 12874086 (Version 1)
Quarter: 2016Q4

REPORT INFORMATION
  Report Type: Report from Study
  Country: US (occurrence: US)
  Receive Date: 20161021
  Receipt Date: 20161021
  Transmission Date: 20170207
  Serious: Yes (Hospitalization, Other)
  Sender: FDA-Public Use
  Company Number: US-GILEAD-2016-0239357

PATIENT
  Age: 72 Year
  Sex: Female

DRUGS (15)
  1. AMBRISENTAN [Suspect]
     Active Substance: AMBRISENTAN
     Indication: PULMONARY ARTERIAL HYPERTENSION
     Dosage: 5 MG, QD
     Route: 065
     Dates: start: 20160930
  2. WARFARIN [Concomitant]
     Active Substance: WARFARIN
  3. EVOXAC [Concomitant]
     Active Substance: CEVIMELINE HYDROCHLORIDE
  4. OMEPRAZOLE. [Concomitant]
     Active Substance: OMEPRAZOLE
  5. DIGESTIVE ENZYME [Concomitant]
     Active Substance: UNSPECIFIED INGREDIENT
  6. ZOCOR [Concomitant]
     Active Substance: SIMVASTATIN
  7. ADCIRCA [Concomitant]
     Active Substance: TADALAFIL
  8. LEVOTHYROXINE. [Concomitant]
     Active Substance: LEVOTHYROXINE
  9. CYANOCOBALAMIN. [Concomitant]
     Active Substance: CYANOCOBALAMIN
  10. BIOTIN [Concomitant]
     Active Substance: BIOTIN
  11. IMODIUM A-D [Concomitant]
     Active Substance: LOPERAMIDE HYDROCHLORIDE
  12. LASIX [Concomitant]
     Active Substance: FUROSEMIDE
  13. AMOXICILLIN. [Concomitant]
     Active Substance: AMOXICILLIN
  14. CALCIUM [Concomitant]
     Active Substance: CALCIUM
  15. ZETIA [Concomitant]
     Active Substance: EZETIMIBE

REACTIONS (5)
  - Fluid retention [Unknown]
  - Hip fracture [Unknown]
  - Weight increased [Unknown]
  - Fall [Unknown]
  - Gallbladder operation [Unknown]
